FAERS Safety Report 18137608 (Version 2)
Quarter: 2020Q4

REPORT INFORMATION
  Report Type: Spontaneous
  Country: RU (occurrence: RU)
  Receive Date: 20200812
  Receipt Date: 20201126
  Transmission Date: 20210113
  Serious: Yes (Death, Other)
  Sender: FDA-Public Use
  Company Number: RU-AMGEN-RUSSP2020127832

PATIENT

DRUGS (3)
  1. REVLIMID [Suspect]
     Active Substance: LENALIDOMIDE
     Indication: PLASMA CELL MYELOMA
     Dosage: 25 MILLIGRAM IN 1- 21 DAYS
     Route: 065
  2. DEXAMETHASONE. [Suspect]
     Active Substance: DEXAMETHASONE
     Indication: PLASMA CELL MYELOMA
     Dosage: 40 MILLIGRAM ON DAYS 1, 8, 15, 22 (CYCLE 28 DAYS)
     Route: 065
  3. CARFILZOMIB [Suspect]
     Active Substance: CARFILZOMIB
     Indication: PLASMA CELL MYELOMA
     Dosage: 27 MILLIGRAM/SQ. METER ON DAYS 1, 2, 8, 9, 15, 16 (20 MG / M2 ON DAYS 1 AND 2 IN THE FIRST CYCLE
     Route: 065

REACTIONS (7)
  - Pneumonia [Fatal]
  - Pulmonary embolism [Fatal]
  - Therapeutic product effect incomplete [Unknown]
  - Arrhythmia [Unknown]
  - Dyspnoea [Unknown]
  - Death [Fatal]
  - Plasma cell myeloma [Fatal]
